FAERS Safety Report 18579950 (Version 1)
Quarter: 2020Q4

REPORT INFORMATION
  Report Type: Spontaneous
  Country: US (occurrence: US)
  Receive Date: 20201204
  Receipt Date: 20201204
  Transmission Date: 20210114
  Serious: No
  Sender: FDA-Public Use
  Company Number: US-NABRIVA THERAPEUTICS IRELAND DAC-US-2020NAB000015

PATIENT
  Age: 29 Year
  Sex: Female

DRUGS (2)
  1. XENLETA [Suspect]
     Active Substance: LEFAMULIN ACETATE
     Indication: MYCOPLASMA GENITALIUM INFECTION
     Dosage: 600 MG, BID
     Route: 065
  2. DOXY                               /00055701/ [Concomitant]
     Indication: MYCOPLASMA GENITALIUM INFECTION
     Dosage: UNK

REACTIONS (4)
  - Diarrhoea [Recovering/Resolving]
  - Abdominal discomfort [Recovering/Resolving]
  - Therapeutic product effective for unapproved indication [Unknown]
  - Off label use [Unknown]
